FAERS Safety Report 9792222 (Version 1)
Quarter: 2013Q4

REPORT INFORMATION
  Report Type: Spontaneous
  Country: US (occurrence: None)
  Receive Date: 20131231
  Receipt Date: 20131231
  Transmission Date: 20140711
  Serious: Yes (Hospitalization, Disabling)
  Sender: FDA-Public Use
  Company Number: None

PATIENT
  Age: 37 Year
  Sex: Female
  Weight: 58.06 kg

DRUGS (2)
  1. CIPROFLOXACIN 500MG AUROBINDO PHARM [Suspect]
     Indication: ANAL FISSURE
     Dosage: TAKEN BY MOUTH
     Dates: start: 20131218, end: 20131225
  2. CIPROFLOXACIN 500MG AUROBINDO PHARM [Suspect]
     Indication: ANAL INFECTION
     Dosage: TAKEN BY MOUTH
     Dates: start: 20131218, end: 20131225

REACTIONS (8)
  - Arthralgia [None]
  - Abasia [None]
  - Myalgia [None]
  - Urticaria [None]
  - Nodule [None]
  - Pain [None]
  - Eye pain [None]
  - Impaired work ability [None]
